FAERS Safety Report 8512957-8 (Version None)
Quarter: 2012Q3

REPORT INFORMATION
  Report Type: 
  Country: None (occurrence: None)
  Receive Date: 20120716
  Receipt Date: 20120705
  Transmission Date: 20120928
  Serious: Yes (Other)
  Sender: FDA-Public Use
  Company Number: US-ASTRAZENECA-2012SE45811

PATIENT
  Age: 66 Year
  Sex: Male
  Weight: 65.8 kg

DRUGS (9)
  1. SYMBICORT [Suspect]
     Indication: CHRONIC OBSTRUCTIVE PULMONARY DISEASE
     Dosage: TWO TIMES A DAY
     Route: 055
     Dates: start: 20100101
  2. PLAVIX [Concomitant]
     Indication: CARDIAC DISORDER
     Route: 048
  3. SPIRIVA [Concomitant]
     Indication: CHRONIC OBSTRUCTIVE PULMONARY DISEASE
     Route: 055
  4. ISOSORBIDE MONOTRATE [Concomitant]
     Indication: CARDIAC DISORDER
     Route: 048
  5. FLEXERIL [Concomitant]
     Indication: BACK PAIN
     Route: 048
  6. PRAVASTATIN [Concomitant]
     Indication: BLOOD CHOLESTEROL INCREASED
     Route: 048
  7. OXYCODONE HCL [Concomitant]
     Indication: BACK PAIN
     Route: 048
  8. OXYCONTIN [Concomitant]
     Indication: BACK PAIN
     Route: 048
  9. OXYCONTIN [Concomitant]
     Route: 048

REACTIONS (5)
  - CHEST DISCOMFORT [None]
  - NIGHT SWEATS [None]
  - PNEUMONIA [None]
  - WEIGHT DECREASED [None]
  - MYOCARDIAL INFARCTION [None]
